FAERS Safety Report 22113185 (Version 1)
Quarter: 2023Q1

REPORT INFORMATION
  Report Type: Other
  Country: CA (occurrence: CA)
  Receive Date: 20230320
  Receipt Date: 20230320
  Transmission Date: 20230417
  Serious: Yes (Death, Other)
  Sender: FDA-Public Use
  Company Number: CA-APOTEX-2023AP005412

PATIENT
  Age: 54 Year
  Sex: Female

DRUGS (3)
  1. FULVESTRANT [Suspect]
     Active Substance: FULVESTRANT
     Indication: Product used for unknown indication
     Dosage: 250 MILLIGRAM, ONCE IN EVERY 4 WEEK
     Route: 030
  2. FULVESTRANT [Suspect]
     Active Substance: FULVESTRANT
     Dosage: UNK, ONCE IN EVERY 4 WEEK
     Route: 030
  3. FULVESTRANT [Suspect]
     Active Substance: FULVESTRANT
     Dosage: UNK
     Route: 065

REACTIONS (1)
  - Death [Fatal]
